FAERS Safety Report 6892674-0 (Version None)
Quarter: 2010Q3

REPORT INFORMATION
  Report Type: 
  Country: None (occurrence: None)
  Receive Date: 20100731
  Receipt Date: 20080808
  Transmission Date: 20110219
  Serious: No
  Sender: FDA-Public Use
  Company Number: US-PFIZER INC-2008066000

PATIENT
  Sex: Male
  Weight: 93.2 kg

DRUGS (11)
  1. AMLODIPINE [Suspect]
     Indication: HYPERTENSION
  2. COREG [Concomitant]
  3. FISH OIL [Concomitant]
  4. HYDROCHLOROTHIAZIDE [Concomitant]
  5. UBIDECARENONE [Concomitant]
  6. FEOSOL [Concomitant]
  7. RAMIPRIL [Concomitant]
  8. METFORMIN HCL [Concomitant]
  9. FOLIC ACID [Concomitant]
  10. COLACE [Concomitant]
  11. ACETYLSALICYLIC ACID SRT [Concomitant]

REACTIONS (2)
  - BLOOD PRESSURE INADEQUATELY CONTROLLED [None]
  - DIZZINESS [None]
